FAERS Safety Report 8460679-4 (Version None)
Quarter: 2012Q2

REPORT INFORMATION
  Report Type: 
  Country: None (occurrence: None)
  Receive Date: 20120622
  Receipt Date: 20120618
  Transmission Date: 20120825
  Serious: Yes (Other)
  Sender: FDA-Public Use
  Company Number: PHEH2012US008918

PATIENT
  Sex: Male

DRUGS (7)
  1. EXTAVIA [Suspect]
     Dosage: 0.125 MG, QOD
     Route: 058
  2. EXTAVIA [Suspect]
     Dosage: 0.225 MG, QOD
     Route: 058
     Dates: start: 20120401
  3. EXTAVIA [Suspect]
     Dosage: 0.25 MG, QOD
     Route: 058
     Dates: start: 20120418, end: 20120616
  4. COPAXONE [Concomitant]
     Dosage: UNK
  5. EXTAVIA [Suspect]
     Indication: MULTIPLE SCLEROSIS
     Dosage: 0.625 MG, QOD
     Route: 058
     Dates: start: 20120418
  6. STEROIDS NOS [Concomitant]
     Dosage: UNK
  7. BETASERON [Concomitant]
     Dosage: UNK

REACTIONS (11)
  - CHILLS [None]
  - LIMB DISCOMFORT [None]
  - FALL [None]
  - CONSTIPATION [None]
  - PAIN IN EXTREMITY [None]
  - ULCER [None]
  - TYMPANIC MEMBRANE PERFORATION [None]
  - HYPOACUSIS [None]
  - MUSCULAR WEAKNESS [None]
  - BOWEL MOVEMENT IRREGULARITY [None]
  - INJECTION SITE REACTION [None]
